FAERS Safety Report 7084429-1 (Version None)
Quarter: 2010Q4

REPORT INFORMATION
  Report Type: 
  Country: None (occurrence: None)
  Receive Date: 20101104
  Receipt Date: 20101103
  Transmission Date: 20110411
  Serious: No
  Sender: FDA-Public Use
  Company Number: US-PFIZER INC-2010126831

PATIENT
  Sex: Male
  Weight: 113 kg

DRUGS (9)
  1. XALATAN [Suspect]
     Indication: OPEN ANGLE GLAUCOMA
     Dosage: 125MCG/2.5ML
     Route: 061
     Dates: start: 20090701
  2. XALATAN [Suspect]
     Dosage: 1 DROP IN THE RIGHT EYE AT BEDTIME
     Dates: start: 20010411
  3. ATENOLOL [Concomitant]
     Dosage: UNK
  4. WARFARIN [Concomitant]
     Dosage: UNK
  5. HYDROCHLOROTHIAZIDE [Concomitant]
     Dosage: UNK
  6. POTASSIUM [Concomitant]
     Dosage: UNK
  7. VALSARTAN [Concomitant]
     Dosage: UNK
  8. CARDURA [Concomitant]
     Dosage: UNK
  9. ALPHAGAN P [Concomitant]
     Indication: GLAUCOMA
     Dosage: FREQUENCY: 2X/DAY,
     Dates: start: 20091005

REACTIONS (2)
  - EYE IRRITATION [None]
  - WEIGHT DECREASED [None]
